FAERS Safety Report 6430812-4 (Version None)
Quarter: 2009Q4

REPORT INFORMATION
  Report Type: 
  Country: None (occurrence: None)
  Receive Date: 20091106
  Receipt Date: 20091022
  Transmission Date: 20100525
  Serious: Yes (Hospitalization)
  Sender: FDA-Public Use
  Company Number: FR-PFIZER INC-2009265368

PATIENT
  Age: 67 Year
  Sex: Female
  Weight: 44 kg

DRUGS (14)
  1. IRINOTECAN HCL [Suspect]
     Indication: GASTRIC CANCER
  2. FLUOROURACIL [Suspect]
     Indication: GASTRIC CANCER
  3. EPIRUBICIN HCL [Suspect]
     Indication: GASTRIC CANCER
     Dosage: 208 MG, CYCLE 1
     Dates: start: 20070615
  4. CISPLATIN [Suspect]
     Indication: GASTRIC CANCER
     Dosage: 250 MG, CYCLE 1
     Dates: start: 20070615
  5. FOLINIC ACID [Suspect]
     Indication: GASTRIC CANCER
  6. XELODA [Suspect]
     Indication: GASTRIC CANCER
     Dosage: 67500 MG, CYCLE 1
     Dates: start: 20070615
  7. NEXIUM [Concomitant]
     Indication: ABDOMINAL PAIN UPPER
     Dosage: 1 DF DAILY
     Route: 048
     Dates: start: 20061001
  8. LEXOMIL [Concomitant]
     Indication: ANXIETY
     Dosage: 0.25 DF DAILY
     Route: 048
     Dates: start: 20061226
  9. ARANESP [Concomitant]
     Indication: ANAEMIA
     Dosage: 1 DF, WEEKLY
     Route: 042
     Dates: start: 20061214
  10. PRAVASTATIN [Concomitant]
     Indication: HYPERCHOLESTEROLAEMIA
     Dosage: 1 DF/DAY
     Route: 048
     Dates: start: 19960101
  11. ARIXTRA [Concomitant]
     Indication: THROMBOSIS
     Dosage: 1 DF/DAY
     Route: 058
     Dates: start: 20070512
  12. DI-ANTALVIC [Concomitant]
     Indication: ABDOMINAL PAIN
     Dosage: UNK AS NEEDED
     Route: 048
     Dates: start: 20070523
  13. ZOPHREN [Concomitant]
     Indication: NAUSEA
     Dosage: UNK AS NEEDED
     Route: 048
     Dates: start: 20070616
  14. SODIUM BICARBONATE [Concomitant]

REACTIONS (3)
  - DECREASED APPETITE [None]
  - GENERAL PHYSICAL HEALTH DETERIORATION [None]
  - NAUSEA [None]
